FAERS Safety Report 6837425-0 (Version None)
Quarter: 2010Q3

REPORT INFORMATION
  Report Type: 
  Country: None (occurrence: None)
  Receive Date: 20100713
  Receipt Date: 20070511
  Transmission Date: 20110219
  Serious: No
  Sender: FDA-Public Use
  Company Number: US-PFIZER INC-2007038625

PATIENT
  Sex: Female
  Weight: 54.4 kg

DRUGS (1)
  1. CHANTIX [Suspect]
     Indication: SMOKING CESSATION THERAPY
     Dosage: DAILY
     Route: 048
     Dates: start: 20070310, end: 20070503

REACTIONS (2)
  - ABDOMINAL PAIN UPPER [None]
  - INSOMNIA [None]
